FAERS Safety Report 18335300 (Version 1)
Quarter: 2020Q4

REPORT INFORMATION
  Report Type: Spontaneous
  Country: US (occurrence: US)
  Receive Date: 20201001
  Receipt Date: 20201001
  Transmission Date: 20210113
  Serious: No
  Sender: FDA-Public Use
  Company Number: None

PATIENT
  Age: 84 Year
  Sex: Male
  Weight: 89.58 kg

DRUGS (8)
  1. ABIRATERONE. [Suspect]
     Active Substance: ABIRATERONE ACETATE
     Indication: PROSTATE CANCER
     Route: 048
     Dates: start: 20190219
  2. DOXAZOSIN MESYLATE. [Concomitant]
     Active Substance: DOXAZOSIN MESYLATE
  3. PREDNISONE. [Concomitant]
     Active Substance: PREDNISONE
  4. BISOPROLOL FUMARATE. [Concomitant]
     Active Substance: BISOPROLOL FUMARATE
  5. LISINOPRIL. [Concomitant]
     Active Substance: LISINOPRIL
  6. SIMVASTATIN. [Concomitant]
     Active Substance: SIMVASTATIN
  7. WARFARIN SODIUM. [Concomitant]
     Active Substance: WARFARIN SODIUM
  8. XGEVA [Concomitant]
     Active Substance: DENOSUMAB

REACTIONS (1)
  - Fatigue [None]

NARRATIVE: CASE EVENT DATE: 20201001
